FAERS Safety Report 16212166 (Version 1)
Quarter: 2019Q2

REPORT INFORMATION
  Report Type: Spontaneous
  Country: US (occurrence: US)
  Receive Date: 20190315
  Receipt Date: 20190315
  Transmission Date: 20190711
  Serious: No
  Sender: FDA-Public Use
  Company Number: None

PATIENT
  Age: 63 Year
  Sex: Female

DRUGS (1)
  1. CAPECITABINE TAB 500MG [Suspect]
     Active Substance: CAPECITABINE
     Dosage: 01-APR-2019

REACTIONS (3)
  - Blood glucose abnormal [None]
  - Off label use [None]
  - Dehydration [None]

NARRATIVE: CASE EVENT DATE: 20190315
